FAERS Safety Report 23879858 (Version 4)
Quarter: 2024Q3

REPORT INFORMATION
  Report Type: Spontaneous
  Country: US (occurrence: US)
  Receive Date: 20240521
  Receipt Date: 20240815
  Transmission Date: 20241017
  Serious: Yes (Other)
  Sender: PFIZER
  Company Number: US-PFIZER INC-202400125066

PATIENT
  Age: 76 Year
  Sex: Female
  Weight: 42.63 kg

DRUGS (17)
  1. XELJANZ [Suspect]
     Active Substance: TOFACITINIB CITRATE
     Indication: Rheumatoid arthritis
     Dosage: 5 MG, 2X/DAY
     Route: 048
  2. XELJANZ [Suspect]
     Active Substance: TOFACITINIB CITRATE
     Dosage: 5 MG, 1X/DAY
     Route: 048
  3. XELJANZ [Suspect]
     Active Substance: TOFACITINIB CITRATE
     Dosage: 5 MG, 1X/DAY
     Route: 048
     Dates: start: 20240425
  4. AMLODIPINE [Concomitant]
     Active Substance: AMLODIPINE BESYLATE
     Dosage: UNK
     Dates: start: 20240123
  5. ASPIRIN [Concomitant]
     Active Substance: ASPIRIN
     Dosage: 81 MG, DAILY
     Route: 048
  6. CALCIUM 600 + D3 PLUS MINERALS [Concomitant]
     Dosage: 250 MG
     Route: 048
  7. DICLOFENAC [Concomitant]
     Active Substance: DICLOFENAC
     Dosage: APPLY 2 G, 4X/DAY TO THE AFFECTED AREA
     Route: 061
  8. FAMOTIDINE [Concomitant]
     Active Substance: FAMOTIDINE
     Dosage: UNK
     Dates: start: 20230810, end: 20240423
  9. FLUTICASONE PROPIONATE [Concomitant]
     Active Substance: FLUTICASONE PROPIONATE
     Dosage: 50 MCG/ACTUATION
     Route: 045
     Dates: start: 20230810
  10. LEFLUNOMIDE [Concomitant]
     Active Substance: LEFLUNOMIDE
     Dosage: UNK
     Route: 048
     Dates: start: 20230810
  11. LEVOTHYROXINE [Concomitant]
     Active Substance: LEVOTHYROXINE\LEVOTHYROXINE SODIUM
     Dosage: 100 UG, 1X/DAY
     Route: 048
     Dates: start: 20240123
  12. LOSARTAN [Concomitant]
     Active Substance: LOSARTAN\LOSARTAN POTASSIUM
     Dosage: UNK
     Route: 048
     Dates: start: 20240123
  13. MIRTAZAPINE [Concomitant]
     Active Substance: MIRTAZAPINE
     Dosage: 7.5 MG, 2X/DAY
     Route: 048
     Dates: start: 20240228
  14. PANTOPRAZOLE [Concomitant]
     Active Substance: PANTOPRAZOLE
     Dosage: UNK
     Route: 048
     Dates: start: 20240123
  15. PROLIA [Concomitant]
     Active Substance: DENOSUMAB
     Indication: Osteoporosis
     Dosage: 1 ML, EVERY 6 MONTHS
     Route: 058
  16. PROLIA [Concomitant]
     Active Substance: DENOSUMAB
     Dosage: 1 ML, EVERY 6 MONTHS
     Route: 058
  17. PROLIA [Concomitant]
     Active Substance: DENOSUMAB
     Dosage: 1 ML, EVERY 6 MONTHS
     Route: 058

REACTIONS (21)
  - Pain [Unknown]
  - Discomfort [Unknown]
  - Hypersensitivity pneumonitis [Unknown]
  - Oesophageal stenosis [Unknown]
  - Hand deformity [Unknown]
  - Hand deformity [Unknown]
  - Swelling [Unknown]
  - Arthritis [Unknown]
  - Joint dislocation [Unknown]
  - Arthralgia [Unknown]
  - Gait disturbance [Unknown]
  - Lung disorder [Unknown]
  - Dysphagia [Unknown]
  - Musculoskeletal stiffness [Unknown]
  - Oedema peripheral [Unknown]
  - Red blood cell sedimentation rate abnormal [Unknown]
  - Grip strength decreased [Unknown]
  - Joint range of motion decreased [Unknown]
  - Synovitis [Unknown]
  - Infection [Recovering/Resolving]
  - Product prescribing error [Unknown]

NARRATIVE: CASE EVENT DATE: 20240313
